FAERS Safety Report 8438222-5 (Version None)
Quarter: 2012Q2

REPORT INFORMATION
  Report Type: 
  Country: None (occurrence: None)
  Receive Date: 20120614
  Receipt Date: 20120601
  Transmission Date: 20120825
  Serious: Yes (Hospitalization, Other)
  Sender: FDA-Public Use
  Company Number: CA-MYLANLABS-2012S1010989

PATIENT
  Age: 59 Year
  Sex: Female

DRUGS (3)
  1. SIMVASTATIN [Concomitant]
     Indication: HYPERLIPIDAEMIA
  2. TRIAMTERENE AND HYDROCHLOROTHIAZIDE [Suspect]
  3. ASPIRIN W/BUTALBITAL/CAFFEINE [Concomitant]
     Indication: MIGRAINE

REACTIONS (4)
  - NON-CARDIOGENIC PULMONARY OEDEMA [None]
  - NAUSEA [None]
  - VOMITING [None]
  - DIARRHOEA [None]
